FAERS Safety Report 25802462 (Version 1)
Quarter: 2025Q3

REPORT INFORMATION
  Report Type: Report from Study
  Country: US (occurrence: US)
  Receive Date: 20250915
  Receipt Date: 20250915
  Transmission Date: 20251021
  Serious: Yes (Hospitalization, Other)
  Sender: GILEAD
  Company Number: US-GILEAD-2025-0727909

PATIENT
  Sex: Male

DRUGS (2)
  1. AZTREONAM LYSINE [Suspect]
     Active Substance: AZTREONAM LYSINE
     Indication: Cystic fibrosis lung
     Dosage: INHALE 75 MG VIA ALTERA NEBULIZER THREE TIMES DAILY FOR 28 DAYS, ALTERNATE WITH TOBI NEBS
     Route: 055
     Dates: start: 20250205
  2. ALYFTREK [Concomitant]
     Active Substance: DEUTIVACAFTOR\TEZACAFTOR\VANZACAFTOR
     Indication: Cystic fibrosis lung

REACTIONS (1)
  - Infective pulmonary exacerbation of cystic fibrosis [Unknown]
